FAERS Safety Report 5809791-6 (Version None)
Quarter: 2008Q3

REPORT INFORMATION
  Report Type: 
  Country: None (occurrence: None)
  Receive Date: 20080715
  Receipt Date: 20080707
  Transmission Date: 20090109
  Serious: Yes (Death, Life-Threatening)
  Sender: FDA-Public Use
  Company Number: GB-AVENTIS-200621393GDDC

PATIENT
  Age: 25 Year
  Sex: Female
  Weight: 60 kg

DRUGS (8)
  1. ARAVA [Suspect]
     Indication: RHEUMATOID ARTHRITIS
     Route: 048
     Dates: start: 20061010, end: 20061023
  2. DICLOFENAC SODIUM [Concomitant]
     Indication: RHEUMATOID ARTHRITIS
     Route: 048
     Dates: start: 20040101
  3. FERROUS SULFATE TAB [Concomitant]
     Route: 048
  4. NAPROXEN [Concomitant]
     Indication: RHEUMATOID ARTHRITIS
     Route: 048
  5. OMEPRAZOLE [Concomitant]
     Route: 048
  6. FOLIC ACID [Concomitant]
     Route: 048
  7. ACETAMINOPHEN W/ CODEINE [Concomitant]
     Dosage: DOSE: UNK
  8. METHOTREXATE [Concomitant]
     Indication: RHEUMATOID ARTHRITIS
     Route: 058
     Dates: start: 20040304, end: 20060914

REACTIONS (3)
  - MULTI-ORGAN FAILURE [None]
  - RESPIRATORY FAILURE [None]
  - TOXIC EPIDERMAL NECROLYSIS [None]
